FAERS Safety Report 6865525-8 (Version None)
Quarter: 2010Q3

REPORT INFORMATION
  Report Type: 
  Country: None (occurrence: None)
  Receive Date: 20100720
  Receipt Date: 20100706
  Transmission Date: 20110219
  Serious: Yes (Hospitalization)
  Sender: FDA-Public Use
  Company Number: 2010-00684

PATIENT
  Age: 50 Year
  Sex: Male

DRUGS (3)
  1. SIMVASTATIN [Suspect]
     Indication: HEMIPARESIS
  2. ASPIRIN [Suspect]
     Indication: ARTERY DISSECTION
  3. DIPYRIDAMOLE [Suspect]
     Indication: ARTERY DISSECTION

REACTIONS (4)
  - CAROTID ARTERY OCCLUSION [None]
  - CEREBRAL INFARCTION [None]
  - CEREBROVASCULAR ACCIDENT [None]
  - CONVULSION [None]
